FAERS Safety Report 4430832-5 (Version None)
Quarter: 2004Q3

REPORT INFORMATION
  Report Type: 
  Country: None (occurrence: None)
  Receive Date: 20040823
  Receipt Date: 20040813
  Transmission Date: 20050211
  Serious: Yes (Hospitalization)
  Sender: FDA-Public Use
  Company Number: GB-BRISTOL-MYERS SQUIBB COMPANY-12669941

PATIENT
  Age: 29 Year
  Sex: Male
  Weight: 67 kg

DRUGS (8)
  1. DIDANOSINE [Suspect]
     Indication: HIV INFECTION
     Route: 048
     Dates: start: 20040517, end: 20040804
  2. EFAVIRENZ [Concomitant]
     Indication: HIV INFECTION
     Dosage: ONCE DAILY
     Route: 048
     Dates: start: 20040517
  3. LAMIVUDINE [Concomitant]
     Indication: HIV INFECTION
     Dosage: ONCE DAILY
     Route: 048
     Dates: start: 20040517
  4. CO-TRIMOXAZOLE [Concomitant]
     Indication: INFECTION PROPHYLAXIS
     Route: 048
     Dates: start: 20030617
  5. CANESTEN [Concomitant]
     Indication: CHEILITIS
     Route: 061
     Dates: start: 20040510
  6. CYCLIZINE [Concomitant]
     Indication: VOMITING
     Dosage: REPORTED DOSE: 50-150 MG
     Route: 048
     Dates: start: 20040517
  7. LOPERAMIDE HCL [Concomitant]
     Indication: DIARRHOEA
     Route: 048
     Dates: start: 20040517
  8. AQUEOUS CREAM BP [Concomitant]
     Indication: SKIN IRRITATION
     Route: 061
     Dates: start: 20040617, end: 20040101

REACTIONS (2)
  - ABDOMINAL PAIN [None]
  - PANCREATITIS [None]
